FAERS Safety Report 12169193 (Version 3)
Quarter: 2016Q1

REPORT INFORMATION
  Report Type: Spontaneous
  Country: ES (occurrence: ES)
  Receive Date: 20160310
  Receipt Date: 20160322
  Transmission Date: 20160526
  Serious: Yes (Death)
  Sender: FDA-Public Use
  Company Number: ES-BAYER-2016-047226

PATIENT
  Age: 73 Year
  Sex: Female

DRUGS (1)
  1. ULTRAVIST [Suspect]
     Active Substance: IOPROMIDE
     Indication: COMPUTERISED TOMOGRAM
     Dosage: 120 ML, UNK
     Dates: start: 20160304, end: 20160304

REACTIONS (12)
  - Nausea [Fatal]
  - Cyanosis [Fatal]
  - Laryngeal oedema [Fatal]
  - Anaphylactic shock [Fatal]
  - Respiratory arrest [Fatal]
  - Hypoxic-ischaemic encephalopathy [Fatal]
  - Rash generalised [Fatal]
  - Dizziness [Fatal]
  - Heart rate decreased [Fatal]
  - Macroglossia [Fatal]
  - Brain injury [Fatal]
  - Supraventricular tachycardia [Fatal]

NARRATIVE: CASE EVENT DATE: 201603
